FAERS Safety Report 8591086 (Version 6)
Quarter: 2013Q2

REPORT INFORMATION
  Report Type: Spontaneous
  Country: US (occurrence: US)
  Receive Date: 20120601
  Receipt Date: 20130507
  Transmission Date: 20140414
  Serious: Yes (Death)
  Sender: FDA-Public Use
  Company Number: US-JNJFOC-20120519366

PATIENT
  Sex: Female
  Weight: 67.59 kg

DRUGS (34)
  1. DURAGESIC [Suspect]
     Indication: PAIN
     Route: 062
     Dates: start: 20070531
  2. DURAGESIC [Suspect]
     Indication: PAIN
     Route: 062
  3. DURAGESIC [Suspect]
     Indication: PAIN
     Route: 062
     Dates: start: 20090507
  4. FENTANYL [Suspect]
     Indication: PAIN
     Route: 062
  5. FENTANYL [Suspect]
     Indication: PAIN
     Route: 062
     Dates: start: 20070712, end: 20080114
  6. FENTANYL [Suspect]
     Indication: PAIN
     Route: 062
     Dates: start: 20080116
  7. FENTANYL [Suspect]
     Indication: PAIN
     Route: 062
     Dates: start: 20080116
  8. ALPRAZOLAM [Concomitant]
     Dosage: AS NEEDED
     Route: 065
  9. EPHEDRINE [Concomitant]
     Route: 065
  10. AMPHETAMINE [Concomitant]
     Route: 065
  11. GABAPENTIN [Concomitant]
     Route: 065
  12. XANAX [Concomitant]
     Indication: ANXIETY
     Route: 048
     Dates: start: 20080114
  13. XANAX [Concomitant]
     Indication: ANXIETY
     Route: 048
     Dates: start: 20090507
  14. CYMBALTA [Concomitant]
     Route: 048
     Dates: start: 2008
  15. CYMBALTA [Concomitant]
     Route: 048
     Dates: start: 20090507
  16. MIACALCIN [Concomitant]
     Dosage: 1 SPRAY (200 UNITS) ALTERNATE NOSTRILS DAILY
     Route: 045
     Dates: start: 20080114
  17. MIACALCIN [Concomitant]
     Dosage: 200 UNITS ALTERNATE NOSTRILS DAILY
     Route: 045
     Dates: start: 20090507
  18. PREVACID [Concomitant]
     Route: 048
     Dates: start: 20090507
  19. PREVACID [Concomitant]
     Route: 048
     Dates: start: 20080114
  20. IMITREX [Concomitant]
     Indication: HEADACHE
     Route: 045
     Dates: start: 20090507
  21. SILVADENE [Concomitant]
     Indication: CONTUSION
     Route: 061
     Dates: start: 20080114
  22. SILVADENE [Concomitant]
     Indication: CONTUSION
     Route: 061
     Dates: start: 20090507
  23. ZYRTEC [Concomitant]
     Route: 048
     Dates: start: 20090507
  24. VESICARE [Concomitant]
     Route: 048
     Dates: start: 20090507
  25. LYRICA [Concomitant]
     Route: 048
  26. ADDERALL [Concomitant]
     Indication: ATTENTION DEFICIT/HYPERACTIVITY DISORDER
     Route: 048
     Dates: start: 20090507
  27. ADDERALL [Concomitant]
     Indication: ATTENTION DEFICIT/HYPERACTIVITY DISORDER
     Route: 048
     Dates: start: 2008
  28. ENABLEX [Concomitant]
     Indication: INCONTINENCE
     Route: 048
     Dates: start: 20080114
  29. ALLEGRA [Concomitant]
     Route: 048
     Dates: start: 20080114
  30. NEURONTIN [Concomitant]
     Route: 048
     Dates: start: 20080114
  31. ADDERALL XR [Concomitant]
     Indication: ATTENTION DEFICIT/HYPERACTIVITY DISORDER
     Dates: start: 20091104
  32. ADDERALL XR [Concomitant]
     Indication: ATTENTION DEFICIT/HYPERACTIVITY DISORDER
     Dates: start: 20091001
  33. ADDERALL XR [Concomitant]
     Indication: ATTENTION DEFICIT/HYPERACTIVITY DISORDER
     Dates: start: 20090914
  34. ADDERALL XR [Concomitant]
     Indication: ATTENTION DEFICIT/HYPERACTIVITY DISORDER
     Dates: start: 20091012

REACTIONS (2)
  - Accidental overdose [Fatal]
  - Drug effect decreased [Unknown]
